FAERS Safety Report 4744471-X (Version None)
Quarter: 2005Q3

REPORT INFORMATION
  Report Type: 
  Country: None (occurrence: None)
  Receive Date: 20050811
  Receipt Date: 20050811
  Transmission Date: 20060218
  Serious: Yes (Hospitalization)
  Sender: FDA-Public Use
  Company Number: None

PATIENT
  Age: 59 Year
  Sex: Female
  Weight: 63.5036 kg

DRUGS (3)
  1. CETUXIMAB [Suspect]
     Indication: LUNG NEOPLASM MALIGNANT
     Dosage: 250MG/M2    X3 DOSES   INTRAVENOU
     Route: 042
     Dates: start: 20050713, end: 20050728
  2. PACLITAXEL [Suspect]
     Indication: LUNG NEOPLASM MALIGNANT
     Dosage: 100MG/M2   X 3 DOSES   INTRAVENOU
     Route: 042
     Dates: start: 20050713, end: 20050728
  3. CARBOPLATIN [Concomitant]

REACTIONS (3)
  - ABDOMINAL PAIN [None]
  - BACK PAIN [None]
  - METASTASES TO SPINE [None]
